FAERS Safety Report 17194553 (Version 2)
Quarter: 2019Q4

REPORT INFORMATION
  Report Type: Spontaneous
  Country: BR (occurrence: BR)
  Receive Date: 20191224
  Receipt Date: 20191231
  Transmission Date: 20200122
  Serious: Yes (Hospitalization, Other)
  Sender: FDA-Public Use
  Company Number: BR-AMGEN-BRASP2019212952

PATIENT
  Age: 68 Year
  Sex: Female

DRUGS (1)
  1. ENBREL [Suspect]
     Active Substance: ETANERCEPT
     Indication: PRODUCT USED FOR UNKNOWN INDICATION
     Dosage: UNK
     Route: 065
     Dates: start: 2011, end: 201907

REACTIONS (8)
  - Contusion [Unknown]
  - Renal failure [Unknown]
  - Cardiac failure [Unknown]
  - Pneumonia [Unknown]
  - Skin abrasion [Unknown]
  - Pain [Unknown]
  - Arthritis [Unknown]
  - Ear pain [Unknown]
